FAERS Safety Report 8455368 (Version 2)
Quarter: 2013Q2

REPORT INFORMATION
  Report Type: Spontaneous
  Country: FR (occurrence: FR)
  Receive Date: 20120313
  Receipt Date: 20130619
  Transmission Date: 20140414
  Serious: Yes (Other)
  Sender: FDA-Public Use
  Company Number: FR-UCBSA-052804

PATIENT
  Age: 74 Year
  Sex: Male

DRUGS (11)
  1. KEPPRA [Suspect]
     Indication: MYOCLONIC EPILEPSY
     Route: 042
     Dates: start: 20120129, end: 20120130
  2. KEPPRA [Suspect]
     Indication: EPILEPSY
     Route: 042
     Dates: start: 20120129, end: 20120130
  3. KEPPRA [Suspect]
     Indication: MYOCLONIC EPILEPSY
     Route: 048
     Dates: start: 20120130, end: 20120202
  4. DIFFU-K [Concomitant]
  5. GARDENAL [Concomitant]
     Dosage: DAILY DOSE-100 MG
  6. FORLAX [Concomitant]
  7. ZOLOFT [Concomitant]
     Dosage: DAILY DOSE 50 MG
  8. TAHOR [Concomitant]
     Dosage: DAILY DOSE-10 MG
  9. XANAX [Concomitant]
     Dosage: DAILY DOSE-0.25 MG
  10. STILNOX [Concomitant]
  11. SINTROM [Concomitant]
     Dates: end: 20120113

REACTIONS (3)
  - Hypoglycaemia [Recovered/Resolved]
  - Hyperhidrosis [Recovered/Resolved]
  - Pallor [Unknown]
